FAERS Safety Report 25891303 (Version 1)
Quarter: 2025Q4

REPORT INFORMATION
  Report Type: Spontaneous
  Country: US (occurrence: US)
  Receive Date: 20251007
  Receipt Date: 20251007
  Transmission Date: 20260118
  Serious: No
  Sender: Haleon PLC
  Company Number: US-HALEON-2266546

PATIENT
  Sex: Female

DRUGS (1)
  1. TUMS NATURALS [Suspect]
     Active Substance: CALCIUM CARBONATE
     Indication: Dyspepsia

REACTIONS (2)
  - Live birth [Unknown]
  - Exposure during pregnancy [Unknown]
